FAERS Safety Report 14686843 (Version 2)
Quarter: 2018Q2

REPORT INFORMATION
  Report Type: Report from Study
  Country: US (occurrence: US)
  Receive Date: 20180327
  Receipt Date: 20180412
  Transmission Date: 20180711
  Serious: Yes (Hospitalization, Other)
  Sender: FDA-Public Use
  Company Number: US-ALEXION PHARMACEUTICALS INC.-A201803267

PATIENT
  Sex: Male

DRUGS (2)
  1. SOLIRIS [Suspect]
     Active Substance: ECULIZUMAB
     Indication: PRODUCT USED FOR UNKNOWN INDICATION
     Dosage: UNK
     Route: 065
  2. SOLIRIS [Suspect]
     Active Substance: ECULIZUMAB
     Dosage: UNK
     Route: 065

REACTIONS (6)
  - Pyrexia [Recovered/Resolved]
  - Oedema peripheral [Recovered/Resolved]
  - Hospitalisation [Recovered/Resolved]
  - Pulmonary oedema [Recovered/Resolved]
  - Stomatitis [Recovered/Resolved]
  - Post procedural fever [Recovered/Resolved]

NARRATIVE: CASE EVENT DATE: 20180313
